FAERS Safety Report 9227654 (Version 1)
Quarter: 2013Q1

REPORT INFORMATION
  Report Type: Spontaneous
  Country: US (occurrence: None)
  Receive Date: 20121012
  Receipt Date: 20121012
  Transmission Date: 20140127
  Serious: Yes (Other)
  Sender: FDA-Public Use
  Company Number: 1000031506

PATIENT
  Age: 56 Year
  Sex: Female

DRUGS (1)
  1. LEXAPRO [Suspect]
     Indication: GENERALISED ANXIETY DISORDER
     Dosage: 10 MG, 1 IN 1 D
     Route: 048
     Dates: start: 2002, end: 2008

REACTIONS (3)
  - Heart rate increased [None]
  - Palpitations [None]
  - Fatigue [None]
